FAERS Safety Report 5038915-6 (Version None)
Quarter: 2006Q2

REPORT INFORMATION
  Report Type: 
  Country: None (occurrence: None)
  Receive Date: 20060627
  Receipt Date: 20060627
  Transmission Date: 20061013
  Serious: Yes (Life-Threatening)
  Sender: FDA-Public Use
  Company Number: None

PATIENT
  Age: 56 Year
  Sex: Female
  Weight: 60 kg

DRUGS (3)
  1. ASPIRIN [Suspect]
     Indication: CORONARY ARTERY DISEASE
     Dosage: 325  MG DAILY ORAL
     Route: 048
  2. PREDNISONE TAB [Concomitant]
  3. DILANTIN [Suspect]

REACTIONS (5)
  - DYSPNOEA [None]
  - HAEMATEMESIS [None]
  - HYPOTENSION [None]
  - TACHYCARDIA [None]
  - UPPER GASTROINTESTINAL HAEMORRHAGE [None]
